FAERS Safety Report 9815882 (Version 1)
Quarter: 2014Q1

REPORT INFORMATION
  Report Type: Spontaneous
  Country: US (occurrence: US)
  Receive Date: 20140114
  Receipt Date: 20140114
  Transmission Date: 20141002
  Serious: No
  Sender: FDA-Public Use
  Company Number: US-PFIZER INC-2014003694

PATIENT
  Age: 87 Year
  Sex: Male

DRUGS (3)
  1. AZITHROMYCIN [Suspect]
     Dosage: UNK
  2. CIPRO [Suspect]
     Dosage: UNK
  3. POTASSIUM [Suspect]
     Dosage: UNK

REACTIONS (1)
  - Drug hypersensitivity [Unknown]
